FAERS Safety Report 6234063 (Version 2)
Quarter: 2014Q1

REPORT INFORMATION
  Report Type: Spontaneous
  Country: US (occurrence: None)
  Receive Date: 20061106
  Receipt Date: 20140228
  Transmission Date: 20141002
  Serious: Yes (Other)
  Sender: FDA-Public Use
  Company Number: US-JNJFOC-20060303446

PATIENT
  Sex: Male
  Weight: 97.52 kg

DRUGS (8)
  1. MOTRIN (IBUPROFEN) [Suspect]
     Indication: PRODUCT USED FOR UNKNOWN INDICATION
     Dosage: DOSAGE UNKNOWN-ONLY TOOK A ^COUPLE OF TIMES^
  2. NEURONTIN [Suspect]
     Indication: CONVULSION
     Dosage: 600 MG, 4 IN 1 DAY
     Dates: start: 1981
  3. TEGRETOL [Suspect]
     Indication: PRODUCT USED FOR UNKNOWN INDICATION
  4. CLONAZEPAM [Suspect]
     Indication: PRODUCT USED FOR UNKNOWN INDICATION
  5. VICOPROFEN [Suspect]
     Indication: PRODUCT USED FOR UNKNOWN INDICATION
  6. PREVACID [Suspect]
     Indication: PRODUCT USED FOR UNKNOWN INDICATION
  7. RITALIN [Concomitant]
  8. TRILEPTAL [Concomitant]

REACTIONS (6)
  - Gastrointestinal haemorrhage [None]
  - Constipation [None]
  - Weight decreased [None]
  - Gastrointestinal disorder [None]
  - Flatulence [None]
  - Abdominal pain upper [None]
